FAERS Safety Report 6275078-3 (Version None)
Quarter: 2009Q3

REPORT INFORMATION
  Report Type: 
  Country: None (occurrence: None)
  Receive Date: 20090721
  Receipt Date: 20090716
  Transmission Date: 20100115
  Serious: Yes (Death)
  Sender: FDA-Public Use
  Company Number: MX-ROCHE-644351

PATIENT

DRUGS (1)
  1. VALCYTE [Suspect]
     Route: 065

REACTIONS (1)
  - PNEUMONITIS [None]
